FAERS Safety Report 16163807 (Version 2)
Quarter: 2019Q4

REPORT INFORMATION
  Report Type: Spontaneous
  Country: US (occurrence: US)
  Receive Date: 20190405
  Receipt Date: 20191108
  Transmission Date: 20200122
  Serious: Yes (Hospitalization)
  Sender: FDA-Public Use
  Company Number: US-JNJFOC-20190404281

PATIENT
  Age: 70 Year
  Sex: Male

DRUGS (7)
  1. PANTOPRAZOLE SODIUM. [Concomitant]
     Active Substance: PANTOPRAZOLE SODIUM
     Dates: start: 20170713, end: 20170914
  2. HYDROCODONE/ACETAMINOPHEN [Concomitant]
     Active Substance: ACETAMINOPHEN\HYDROCODONE
     Dates: start: 20160614, end: 20170525
  3. COROVAL B [Concomitant]
     Dates: start: 20140617, end: 20170718
  4. METHYLPREDNISOLONE. [Concomitant]
     Active Substance: METHYLPREDNISOLONE
     Dates: start: 20140605, end: 20170424
  5. COLCRYS [Concomitant]
     Active Substance: COLCHICINE
     Dates: start: 20150612, end: 20170918
  6. XARELTO [Suspect]
     Active Substance: RIVAROXABAN
     Indication: THROMBOSIS PROPHYLAXIS
     Dosage: 15 MG TWICE DAILY FOR 21 DAY AND THEN 20 MG ONCE DAILY
     Route: 048
     Dates: start: 20161120, end: 20170216
  7. XARELTO [Suspect]
     Active Substance: RIVAROXABAN
     Indication: PULMONARY EMBOLISM
     Route: 048
     Dates: end: 20171216

REACTIONS (2)
  - Haematuria [Unknown]
  - Renal disorder [Unknown]

NARRATIVE: CASE EVENT DATE: 20170311
